FAERS Safety Report 10550498 (Version 1)
Quarter: 2014Q4

REPORT INFORMATION
  Report Type: Spontaneous
  Country: US (occurrence: US)
  Receive Date: 20141029
  Receipt Date: 20141029
  Transmission Date: 20150529
  Serious: No
  Sender: FDA-Public Use
  Company Number: US-TEVA-504236USA

PATIENT
  Sex: Female
  Weight: 72.64 kg

DRUGS (2)
  1. ABILIFY [Concomitant]
     Active Substance: ARIPIPRAZOLE
  2. PROVIGIL [Suspect]
     Active Substance: MODAFINIL
     Indication: ATTENTION DEFICIT/HYPERACTIVITY DISORDER
     Dates: start: 2013

REACTIONS (5)
  - Product use issue [Unknown]
  - Product label issue [Unknown]
  - Hypersomnia [Recovered/Resolved]
  - Gait disturbance [Unknown]
  - Dysarthria [Unknown]

NARRATIVE: CASE EVENT DATE: 2013
